FAERS Safety Report 15014409 (Version 1)
Quarter: 2018Q2

REPORT INFORMATION
  Report Type: Spontaneous
  Country: US (occurrence: US)
  Receive Date: 20180615
  Receipt Date: 20180615
  Transmission Date: 20180711
  Serious: Yes (Hospitalization, Other)
  Sender: FDA-Public Use
  Company Number: US-ASTRAZENECA-2018SE75038

PATIENT
  Age: 963 Month
  Sex: Male
  Weight: 79.8 kg

DRUGS (5)
  1. BRILINTA [Suspect]
     Active Substance: TICAGRELOR
     Indication: STENT PLACEMENT
     Route: 048
     Dates: start: 201804
  2. ASPIRIN. [Concomitant]
     Active Substance: ASPIRIN
     Dosage: 81.0MG UNKNOWN
  3. ASPIRIN. [Concomitant]
     Active Substance: ASPIRIN
     Dosage: 325.0MG UNKNOWN
  4. CRESTOR [Suspect]
     Active Substance: ROSUVASTATIN CALCIUM
     Indication: BLOOD CHOLESTEROL ABNORMAL
     Dosage: 40 MG DAILY (ROSUVATATIN CALCIUM) UNKNOWN
     Route: 048
     Dates: start: 2016
  5. CRESTOR [Suspect]
     Active Substance: ROSUVASTATIN CALCIUM
     Indication: BLOOD CHOLESTEROL ABNORMAL
     Dosage: UNKNOWN
     Route: 048
     Dates: start: 2008, end: 2016

REACTIONS (9)
  - Chest pain [Unknown]
  - Pain [Unknown]
  - Contusion [Unknown]
  - Carotid artery occlusion [Unknown]
  - Eye swelling [Unknown]
  - Platelet count decreased [Unknown]
  - Hypoacusis [Unknown]
  - Ocular hyperaemia [Recovering/Resolving]
  - Vascular occlusion [Unknown]

NARRATIVE: CASE EVENT DATE: 201711
